FAERS Safety Report 4781777-2 (Version None)
Quarter: 2005Q3

REPORT INFORMATION
  Report Type: 
  Country: None (occurrence: None)
  Receive Date: 20050927
  Receipt Date: 20050913
  Transmission Date: 20060218
  Serious: Yes (Other)
  Sender: FDA-Public Use
  Company Number: USA0509107451

PATIENT
  Age: 72 Year
  Sex: Female

DRUGS (15)
  1. XIGRIS [Suspect]
     Indication: SEPSIS
     Dosage: 24 MG/KG/HR
     Dates: start: 20050829, end: 20050831
  2. LOVENOX [Concomitant]
  3. DOPAMINE [Concomitant]
  4. ASPIRIN [Concomitant]
  5. FENTANYL [Concomitant]
  6. LORAZEPAM [Concomitant]
  7. SOLU-MEDROL [Concomitant]
  8. QUININE [Concomitant]
  9. PANTOPRAZOLE [Concomitant]
  10. CEFTRIAXONE [Concomitant]
  11. LEVOFLOXACIN [Concomitant]
  12. LASIX [Concomitant]
  13. POTASSIUM CHLORIDE [Concomitant]
  14. SODIUM CHLORIDE [Concomitant]
  15. INJECTIONS OF FENTANYL [Concomitant]

REACTIONS (17)
  - ACTIVATED PARTIAL THROMBOPLASTIN TIME PROLONGED [None]
  - ACUTE RESPIRATORY DISTRESS SYNDROME [None]
  - BLOOD CREATINE PHOSPHOKINASE INCREASED [None]
  - BLOOD UREA INCREASED [None]
  - COAGULOPATHY [None]
  - CONDITION AGGRAVATED [None]
  - CULTURE URINE POSITIVE [None]
  - ESCHERICHIA INFECTION [None]
  - FAECES DISCOLOURED [None]
  - FIBRIN D DIMER INCREASED [None]
  - GASTROINTESTINAL HAEMORRHAGE [None]
  - HAEMATOCRIT DECREASED [None]
  - HAEMOGLOBIN DECREASED [None]
  - IMMUNODEFICIENCY [None]
  - PLATELET COUNT DECREASED [None]
  - SEPTIC SHOCK [None]
  - UROSEPSIS [None]
